FAERS Safety Report 18888722 (Version 1)
Quarter: 2021Q1

REPORT INFORMATION
  Report Type: Spontaneous
  Country: TR (occurrence: TR)
  Receive Date: 20210213
  Receipt Date: 20210213
  Transmission Date: 20210420
  Serious: Yes (Other)
  Sender: FDA-Public Use
  Company Number: TR-LUPIN PHARMACEUTICALS INC.-2021-01574

PATIENT
  Age: 10 Year
  Sex: Male

DRUGS (4)
  1. PREDNISONE. [Suspect]
     Active Substance: PREDNISONE
     Dosage: UNK (DOSE TAPERED OVER NEXT ONE WEEK)
     Route: 048
  2. IMMUNE GLOBULIN [Concomitant]
     Indication: MULTISYSTEM INFLAMMATORY SYNDROME IN CHILDREN
     Dosage: 2 G/KG
     Route: 042
  3. PREDNISONE. [Suspect]
     Active Substance: PREDNISONE
     Indication: COVID-19
     Dosage: 1 MILLIGRAM/KILOGRAM, QD
     Route: 048
  4. METHYLPREDNISOLONE. [Suspect]
     Active Substance: METHYLPREDNISOLONE
     Indication: COVID-19
     Dosage: 1 MILLIGRAM/KILOGRAM, QD
     Route: 065

REACTIONS (1)
  - Off label use [Unknown]
